FAERS Safety Report 7302253 (Version 2)
Quarter: 2013Q3

REPORT INFORMATION
  Report Type: Spontaneous
  Country: None (occurrence: None)
  Receive Date: 20100204
  Receipt Date: 20130708
  Transmission Date: 20140515
  Serious: Yes (Other)
  Sender: FDA-Public Use
  Company Number: AUR-APL-2010-00197

PATIENT
  Age: 52 Year
  Sex: Female

DRUGS (2)
  1. CLINDAMYCIN [Suspect]
     Indication: CENTRAL NERVOUS SYSTEM ABSCESS
  2. AMOXICILLIN [Concomitant]
     Indication: BRAIN ABSCESS

REACTIONS (12)
  - Hepatotoxicity [None]
  - Dizziness [None]
  - Malaise [None]
  - Abdominal pain upper [None]
  - Headache [None]
  - Alanine aminotransferase increased [None]
  - Aspartate aminotransferase increased [None]
  - Gamma-glutamyltransferase increased [None]
  - Blood alkaline phosphatase increased [None]
  - Blood lactate dehydrogenase increased [None]
  - Dizziness [None]
  - Malaise [None]
